FAERS Safety Report 6493780-5 (Version None)
Quarter: 2009Q4

REPORT INFORMATION
  Report Type: 
  Country: None (occurrence: None)
  Receive Date: 20091214
  Receipt Date: 20081204
  Transmission Date: 20100525
  Serious: No
  Sender: FDA-Public Use
  Company Number: US-BRISTOL-MYERS SQUIBB COMPANY-14392922

PATIENT
  Age: 32 Year
  Sex: Female

DRUGS (4)
  1. ABILIFY [Suspect]
     Indication: BIPOLAR DISORDER
     Dosage: 1 TABLET AT BEDTIME. INITIALLY REDUCED TO 2MG/D, EVENTUALLY DISCONTINUED.
     Route: 048
     Dates: start: 20080924, end: 20081024
  2. LAMICTAL [Concomitant]
     Route: 048
  3. AMBIEN [Concomitant]
     Route: 048
  4. ATIVAN [Concomitant]
     Route: 048

REACTIONS (4)
  - APHASIA [None]
  - GLOSSODYNIA [None]
  - PARAESTHESIA ORAL [None]
  - SWOLLEN TONGUE [None]
